FAERS Safety Report 7992549-X (Version None)
Quarter: 2011Q4

REPORT INFORMATION
  Report Type: 
  Country: None (occurrence: None)
  Receive Date: 20111219
  Receipt Date: 20111101
  Transmission Date: 20120403
  Serious: Yes (Other)
  Sender: FDA-Public Use
  Company Number: US-PERRIGO-11US011019

PATIENT
  Sex: Male
  Weight: 70.295 kg

DRUGS (1)
  1. LORATADINE [Suspect]
     Indication: SEASONAL ALLERGY
     Dosage: 10 MG, QD
     Route: 048
     Dates: start: 20111016, end: 20111016

REACTIONS (3)
  - SOMNOLENCE [None]
  - EXPIRED DRUG ADMINISTERED [None]
  - VOMITING [None]
